FAERS Safety Report 5542071-5 (Version None)
Quarter: 2007Q4

REPORT INFORMATION
  Report Type: 
  Country: None (occurrence: None)
  Receive Date: 20071205
  Receipt Date: 20071126
  Transmission Date: 20080405
  Serious: Yes (Death)
  Sender: FDA-Public Use
  Company Number: TCI2007A06310

PATIENT
  Age: 49 Year
  Sex: Female

DRUGS (7)
  1. LEUPROLIDE ACETATE [Suspect]
     Indication: BREAST CANCER
     Dosage: 11.25 MG (11.25 MG,1 IN 12 WK)
     Route: 058
     Dates: start: 20061124, end: 20070802
  2. TAXOTERE [Concomitant]
  3. NAVELBINE [Concomitant]
  4. TS 1 (TS 1) [Concomitant]
  5. GLYCYRON                 (GLYCYRON) [Concomitant]
  6. LASIX [Concomitant]
  7. FEMARA [Concomitant]

REACTIONS (2)
  - HEPATIC ATROPHY [None]
  - METASTASES TO LIVER [None]
